FAERS Safety Report 7424513-3 (Version None)
Quarter: 2011Q2

REPORT INFORMATION
  Report Type: 
  Country: None (occurrence: None)
  Receive Date: 20110411
  Receipt Date: 20110411
  Transmission Date: 20111010
  Serious: No
  Sender: FDA-Public Use
  Company Number: 2125337-2010-00002

PATIENT
  Sex: Female

DRUGS (1)
  1. SWEEN 24, 6%DIMETHICONE, 2OZ TUBE FROM COLOPLAST A/S [Suspect]
     Indication: DRY SKIN PROPHYLAXIS
     Dosage: TOPICAL
     Route: 061

REACTIONS (3)
  - VULVOVAGINAL SWELLING [None]
  - VULVOVAGINAL BURNING SENSATION [None]
  - VULVOVAGINAL ERYTHEMA [None]
